FAERS Safety Report 16207657 (Version 1)
Quarter: 2019Q2

REPORT INFORMATION
  Report Type: Spontaneous
  Country: US (occurrence: US)
  Receive Date: 20190417
  Receipt Date: 20190417
  Transmission Date: 20190711
  Serious: No
  Sender: FDA-Public Use
  Company Number: US-ABBVIE-18S-163-2475377-00

PATIENT
  Age: 5 Year

DRUGS (1)
  1. LUPRON DEPOT [Suspect]
     Active Substance: LEUPROLIDE ACETATE
     Indication: PRECOCIOUS PUBERTY
     Dosage: 11.25 MG EVERY 3 MONTHS
     Route: 030

REACTIONS (1)
  - Therapeutic product effect incomplete [Not Recovered/Not Resolved]
